FAERS Safety Report 5664811-7 (Version None)
Quarter: 2008Q1

REPORT INFORMATION
  Report Type: 
  Country: None (occurrence: None)
  Receive Date: 20080314
  Receipt Date: 20080306
  Transmission Date: 20080703
  Serious: Yes (Hospitalization)
  Sender: FDA-Public Use
  Company Number: DE-ABBOTT-06P-062-0342033-00

PATIENT
  Sex: Female
  Weight: 89 kg

DRUGS (11)
  1. HUMIRA [Suspect]
     Indication: RHEUMATOID ARTHRITIS
     Route: 058
     Dates: start: 20060101, end: 20060701
  2. HUMIRA [Suspect]
     Route: 058
     Dates: start: 20070101, end: 20070801
  3. HUMIRA [Suspect]
     Route: 058
     Dates: start: 20071113
  4. METHOTREXATE SODIUM [Suspect]
     Indication: RHEUMATOID ARTHRITIS
     Route: 048
     Dates: start: 20000101, end: 20060701
  5. METHOTREXATE SODIUM [Suspect]
     Route: 048
     Dates: start: 20070101, end: 20070801
  6. METHOTREXATE SODIUM [Suspect]
     Route: 048
     Dates: start: 20071101
  7. PREDNISOLONE [Concomitant]
     Indication: RHEUMATOID ARTHRITIS
     Route: 048
     Dates: start: 20010801
  8. PREDNISOLONE [Concomitant]
     Route: 048
     Dates: start: 19980101
  9. FOLIC ACID [Concomitant]
     Indication: DRUG USE FOR UNKNOWN INDICATION
     Dates: start: 20010801, end: 20060701
  10. ESTROGENS CONJUGATED [Concomitant]
     Indication: DRUG USE FOR UNKNOWN INDICATION
  11. TILIDINE HYDROCHLORIDE [Concomitant]
     Indication: DRUG USE FOR UNKNOWN INDICATION

REACTIONS (5)
  - BREAST CANCER [None]
  - DEPRESSION [None]
  - HEPATIC ENZYME INCREASED [None]
  - IMPAIRED HEALING [None]
  - INCONTINENCE [None]
